FAERS Safety Report 9715405 (Version 1)
Quarter: 2013Q4

REPORT INFORMATION
  Report Type: Spontaneous
  Country: US (occurrence: US)
  Receive Date: 20131127
  Receipt Date: 20131127
  Transmission Date: 20140711
  Serious: Yes (Hospitalization)
  Sender: FDA-Public Use
  Company Number: US-BIOGENIDEC-2013BI113206

PATIENT
  Age: 50 Year
  Sex: Female

DRUGS (4)
  1. AVONEX [Suspect]
     Indication: MULTIPLE SCLEROSIS
     Route: 030
     Dates: start: 20111219
  2. AVONEX [Suspect]
     Indication: MULTIPLE SCLEROSIS
     Route: 030
     Dates: start: 20121219, end: 20130401
  3. AVONEX [Suspect]
     Indication: MULTIPLE SCLEROSIS
     Route: 030
  4. GILENYA [Concomitant]
     Dates: start: 2013, end: 2013

REACTIONS (2)
  - Heart rate abnormal [Recovered/Resolved]
  - Heart rate increased [Unknown]
